FAERS Safety Report 7029793-4 (Version None)
Quarter: 2010Q4

REPORT INFORMATION
  Report Type: 
  Country: None (occurrence: None)
  Receive Date: 20101006
  Receipt Date: 20100923
  Transmission Date: 20110411
  Serious: Yes (Other)
  Sender: FDA-Public Use
  Company Number: US-RB-014107-10

PATIENT
  Age: 34 Year
  Sex: Male

DRUGS (1)
  1. MUCINEX DM [Suspect]
     Route: 048
     Dates: start: 20100921

REACTIONS (2)
  - DRUG INEFFECTIVE [None]
  - HAEMOPTYSIS [None]
